FAERS Safety Report 4965762-3 (Version None)
Quarter: 2006Q2

REPORT INFORMATION
  Report Type: 
  Country: None (occurrence: None)
  Receive Date: 20060403
  Receipt Date: 20060324
  Transmission Date: 20061013
  Serious: Yes (Other)
  Sender: FDA-Public Use
  Company Number: 2006BH006502

PATIENT
  Age: 45 Year
  Sex: Male

DRUGS (3)
  1. TAZICEF (CEFTAZIDIME SODIUM INJECTION) (CEFTAZIDIME) [Suspect]
     Indication: PERITONITIS
     Dosage: 1 GM; PARN
  2. GENTAMICIN [Suspect]
     Indication: PERITONITIS
  3. TEICOPLANIN (TEICOPLANIN) [Suspect]
     Indication: PERITONITIS
     Dosage: 400 MG; PARN

REACTIONS (2)
  - NOSOCOMIAL INFECTION [None]
  - PERITONITIS [None]
